FAERS Safety Report 8357353-1 (Version None)
Quarter: 2012Q2

REPORT INFORMATION
  Report Type: 
  Country: None (occurrence: None)
  Receive Date: 20120514
  Receipt Date: 20120503
  Transmission Date: 20120825
  Serious: Yes (Hospitalization)
  Sender: FDA-Public Use
  Company Number: NL-JNJFOC-20120410766

PATIENT
  Sex: Male

DRUGS (4)
  1. CONCERTA [Suspect]
     Route: 048
  2. CONCERTA [Suspect]
     Indication: ATTENTION DEFICIT/HYPERACTIVITY DISORDER
     Route: 048
     Dates: start: 20110101
  3. CONCERTA [Suspect]
     Route: 048
     Dates: start: 20120101
  4. CONCERTA [Suspect]
     Route: 048

REACTIONS (9)
  - ATTENTION DEFICIT/HYPERACTIVITY DISORDER [None]
  - SYNCOPE [None]
  - OVERDOSE [None]
  - DIZZINESS [None]
  - INCORRECT DOSE ADMINISTERED [None]
  - VISION BLURRED [None]
  - NAUSEA [None]
  - HEADACHE [None]
  - CHEST PAIN [None]
